FAERS Safety Report 8772104 (Version 4)
Quarter: 2013Q3

REPORT INFORMATION
  Report Type: Report from Study
  Country: JP (occurrence: JP)
  Receive Date: 20120905
  Receipt Date: 20130913
  Transmission Date: 20140515
  Serious: Yes (Other)
  Sender: FDA-Public Use
  Company Number: JP-VERTEX PHARMACEUTICAL INC.-2012-020680

PATIENT
  Age: 27 Year
  Sex: Male

DRUGS (10)
  1. VX-950 (TELAPREVIR) [Suspect]
     Indication: CHRONIC HEPATITIS C
     Dosage: 2250 MG, QD
     Route: 048
     Dates: start: 20120514, end: 20120806
  2. RIBAVIRIN [Suspect]
     Indication: CHRONIC HEPATITIS C
     Dosage: 1000 MG, QD
     Route: 048
     Dates: start: 20120514, end: 20120617
  3. RIBAVIRIN [Suspect]
     Dosage: 600 MG, QD
     Route: 048
     Dates: start: 20120618, end: 20121029
  4. PEG INTRON [Suspect]
     Indication: CHRONIC HEPATITIS C
     Dosage: 1.5 ?G/KG, QW
     Route: 058
     Dates: start: 20120514, end: 20120521
  5. PEG INTRON [Suspect]
     Dosage: 1.3 ?G/KG, QW
     Route: 058
     Dates: start: 20120528, end: 20120717
  6. PEG INTRON [Suspect]
     Dosage: 0.6 ?G/KG, QW
     Route: 058
     Dates: start: 20120723, end: 20120723
  7. PEG INTRON [Suspect]
     Dosage: 1.3 ?G/KG, QW
     Route: 058
     Dates: start: 20120730, end: 20121020
  8. ZADITEN [Concomitant]
     Dosage: UNK, QD/PRN
     Route: 045
     Dates: start: 20120517, end: 20120617
  9. ZADITEN [Concomitant]
     Dosage: UNK UNK, QD/PRN
     Route: 045
     Dates: end: 201210
  10. SELBEX [Concomitant]
     Dosage: 50 MG,PRN
     Route: 048
     Dates: start: 20120523

REACTIONS (1)
  - White blood cell count decreased [Recovered/Resolved]
